FAERS Safety Report 8916071 (Version 1)
Quarter: 2012Q4

REPORT INFORMATION
  Report Type: 
  Country: DE (occurrence: DE)
  Receive Date: 20121119
  Receipt Date: 20121119
  Transmission Date: 20130627
  Serious: Yes (Hospitalization)
  Sender: FDA-Public Use
  Company Number: DE-TEVA-368923GER

PATIENT
  Age: 35 Year
  Sex: Male
  Weight: 123 kg

DRUGS (1)
  1. PROPOFOL [Suspect]
     Indication: OCCUPATIONAL EXPOSURE TO DRUG
     Dosage: 8h per day for 1 week as vapours

REACTIONS (4)
  - Pulmonary oedema [Recovered/Resolved with Sequelae]
  - Dyspnoea [Recovered/Resolved with Sequelae]
  - Diaphragmatic paralysis [Recovered/Resolved with Sequelae]
  - Left ventricular dysfunction [Recovered/Resolved with Sequelae]
